FAERS Safety Report 8032459-5 (Version None)
Quarter: 2012Q1

REPORT INFORMATION
  Report Type: 
  Country: None (occurrence: None)
  Receive Date: 20120110
  Receipt Date: 20111227
  Transmission Date: 20120608
  Serious: Yes (Hospitalization, Other)
  Sender: FDA-Public Use
  Company Number: KR-UCBSA-030721

PATIENT
  Age: 58 Year
  Sex: Female
  Weight: 48 kg

DRUGS (9)
  1. HYDROCHLOROTHIAZIDE [Concomitant]
     Indication: GENERALISED OEDEMA
     Route: 048
     Dates: start: 20050923
  2. REBAMIPIDE [Concomitant]
     Route: 048
     Dates: start: 20110331
  3. TRIAMCINOLONE [Concomitant]
     Indication: RHEUMATOID ARTHRITIS
     Route: 048
     Dates: start: 20081125
  4. CERTOLIZUMAB PEGOL [Suspect]
     Indication: RHEUMATOID ARTHRITIS
     Dosage: NO OF DOSES RECEIVED:13
     Route: 058
     Dates: start: 20101014, end: 20110331
  5. REBAMIPIDE [Concomitant]
     Indication: PROPHYLAXIS
     Route: 048
     Dates: start: 20050923, end: 20110330
  6. FOLIC ACID [Concomitant]
     Indication: DRUG TOXICITY PROPHYLAXIS
     Route: 048
     Dates: start: 20060613
  7. METHOTREXATE [Concomitant]
     Indication: RHEUMATOID ARTHRITIS
     Route: 048
     Dates: start: 20060808
  8. NABUMETON [Concomitant]
     Indication: RHEUMATOID ARTHRITIS
     Route: 048
     Dates: start: 20050923, end: 20110330
  9. NABUMETON [Concomitant]
     Route: 048
     Dates: start: 20110331, end: 20110608

REACTIONS (1)
  - TUBERCULOSIS [None]
